FAERS Safety Report 15496021 (Version 3)
Quarter: 2019Q2

REPORT INFORMATION
  Report Type: Report from Study
  Country: GB (occurrence: GB)
  Receive Date: 20181012
  Receipt Date: 20190510
  Transmission Date: 20190711
  Serious: Yes (Hospitalization, Other)
  Sender: FDA-Public Use
  Company Number: GB-GILEAD-2018-0367725

PATIENT
  Age: 54 Year
  Sex: Female
  Weight: 94 kg

DRUGS (11)
  1. FUMARATE DISODIUM [Concomitant]
     Active Substance: DISODIUM FUMARATE
  2. RAMIPRIL. [Concomitant]
     Active Substance: RAMIPRIL
  3. BISOPROLOL [Concomitant]
     Active Substance: BISOPROLOL
  4. CODEINE [Concomitant]
     Active Substance: CODEINE
  5. CLOPIDOGREL [Concomitant]
     Active Substance: CLOPIDOGREL BISULFATE
  6. LEDIPASVIR/SOFOSBUVIR [Suspect]
     Active Substance: LEDIPASVIR\SOFOSBUVIR
     Indication: HEPATITIS C
     Dosage: 1 DF, QD
     Route: 048
     Dates: start: 20180918
  7. THYROXINE [Concomitant]
     Active Substance: LEVOTHYROXINE
  8. LACTULOSE. [Concomitant]
     Active Substance: LACTULOSE
  9. ASPIRIN                            /00002701/ [Concomitant]
     Active Substance: ASPIRIN
  10. PHOSPHATE                          /01053101/ [Concomitant]
     Active Substance: SODIUM PHOSPHATE\SODIUM PHOSPHATE, MONOBASIC
  11. ATORVASTATIN [Concomitant]
     Active Substance: ATORVASTATIN

REACTIONS (3)
  - Ventricular tachycardia [Unknown]
  - Chest pain [Unknown]
  - Myocarditis [Unknown]

NARRATIVE: CASE EVENT DATE: 20181005
